FAERS Safety Report 6898780-9 (Version None)
Quarter: 2010Q3

REPORT INFORMATION
  Report Type: 
  Country: None (occurrence: None)
  Receive Date: 20100802
  Receipt Date: 20071128
  Transmission Date: 20110219
  Serious: No
  Sender: FDA-Public Use
  Company Number: US-PFIZER INC-2007076002

PATIENT
  Sex: Male
  Weight: 118.4 kg

DRUGS (3)
  1. LYRICA [Suspect]
     Indication: NEUROPATHY PERIPHERAL
     Route: 048
     Dates: start: 20061001, end: 20061201
  2. BENICAR [Concomitant]
  3. WARFARIN SODIUM [Concomitant]

REACTIONS (2)
  - BREAST PAIN [None]
  - GYNAECOMASTIA [None]
